FAERS Safety Report 5205919-X (Version None)
Quarter: 2007Q1

REPORT INFORMATION
  Report Type: 
  Country: None (occurrence: None)
  Receive Date: 20070111
  Receipt Date: 20070102
  Transmission Date: 20070707
  Serious: Yes (Hospitalization, Disabling)
  Sender: FDA-Public Use
  Company Number: PL-AMGEN-UK205330

PATIENT
  Sex: Male

DRUGS (1)
  1. PANITUMUMAB [Suspect]
     Indication: COLORECTAL CANCER
     Route: 042
     Dates: start: 20061108, end: 20061220

REACTIONS (3)
  - ANOREXIA [None]
  - DEHYDRATION [None]
  - FATIGUE [None]
